FAERS Safety Report 10170504 (Version 2)
Quarter: 2014Q3

REPORT INFORMATION
  Report Type: Spontaneous
  Country: US (occurrence: US)
  Receive Date: 20140513
  Receipt Date: 20140905
  Transmission Date: 20150326
  Serious: Yes (Hospitalization, Other)
  Sender: FDA-Public Use
  Company Number: US-GILEAD-2014-0102343

PATIENT
  Age: 78 Year
  Sex: Female
  Weight: 94.8 kg

DRUGS (16)
  1. LANOXIN [Concomitant]
     Active Substance: DIGOXIN
  2. NOVOLOG [Concomitant]
     Active Substance: INSULIN ASPART
  3. TYVASO [Suspect]
     Active Substance: TREPROSTINIL
     Indication: PULMONARY ARTERIAL HYPERTENSION
     Dosage: 72 ?G, QD
     Route: 055
     Dates: start: 20131009
  4. LEVOTHYROXIN [Concomitant]
     Active Substance: LEVOTHYROXINE
  5. ADEMPAS [Suspect]
     Active Substance: RIOCIGUAT
     Indication: PULMONARY ARTERIAL HYPERTENSION
     Dosage: 2.5 MG, QD
     Dates: start: 201311
  6. ADCIRCA [Suspect]
     Active Substance: TADALAFIL
     Indication: PULMONARY ARTERIAL HYPERTENSION
     Dosage: 40 MG, QD
     Dates: start: 201009
  7. ASPIRIN                            /00002701/ [Concomitant]
     Active Substance: ASPIRIN
  8. BUMEX [Concomitant]
     Active Substance: BUMETANIDE
  9. LETAIRIS [Suspect]
     Active Substance: AMBRISENTAN
     Indication: PRODUCT USED FOR UNKNOWN INDICATION
     Dosage: 10 MG, QD
     Route: 048
     Dates: start: 20111019
  10. POTASSIUM CHLORIDE. [Concomitant]
     Active Substance: POTASSIUM CHLORIDE
  11. PRAVACHOL [Concomitant]
     Active Substance: PRAVASTATIN SODIUM
  12. ALDACTONE [Concomitant]
     Active Substance: SPIRONOLACTONE
  13. DIOVAN [Concomitant]
     Active Substance: VALSARTAN
  14. AMBIEN [Concomitant]
     Active Substance: ZOLPIDEM TARTRATE
  15. TOPROL XL [Concomitant]
     Active Substance: METOPROLOL SUCCINATE
  16. LANTUS [Concomitant]
     Active Substance: INSULIN GLARGINE

REACTIONS (1)
  - Pulmonary hypertension [Recovered/Resolved with Sequelae]

NARRATIVE: CASE EVENT DATE: 20140422
